FAERS Safety Report 8097990-5 (Version None)
Quarter: 2012Q1

REPORT INFORMATION
  Report Type: 
  Country: None (occurrence: None)
  Receive Date: 20120128
  Receipt Date: 20110816
  Transmission Date: 20120608
  Serious: No
  Sender: FDA-Public Use
  Company Number: US-ABBOTT-11P-163-0846917-00

PATIENT
  Age: 52 Year
  Sex: Male

DRUGS (5)
  1. LEFLUNOMIDE [Concomitant]
     Indication: PRODUCT USED FOR UNKNOWN INDICATION
  2. NAPROSYN [Concomitant]
     Indication: PAIN
  3. HUMIRA [Suspect]
     Indication: PSORIATIC ARTHROPATHY
     Dates: start: 20110501
  4. TRAMADOL HCL [Concomitant]
     Indication: PAIN
     Dosage: 2-3 TIMES DAILY
  5. PREDNISONE TAB [Concomitant]
     Indication: PRODUCT USED FOR UNKNOWN INDICATION

REACTIONS (4)
  - SLEEP DISORDER [None]
  - DRUG EFFECT DECREASED [None]
  - PAIN [None]
  - DRUG EFFECT DELAYED [None]
